FAERS Safety Report 6678129-7 (Version None)
Quarter: 2010Q2

REPORT INFORMATION
  Report Type: 
  Country: None (occurrence: None)
  Receive Date: 20100412
  Receipt Date: 20100407
  Transmission Date: 20101027
  Serious: Yes (Hospitalization)
  Sender: FDA-Public Use
  Company Number: DE-MERCK-1002DEU00105

PATIENT
  Age: 61 Year
  Sex: Female
  Weight: 69 kg

DRUGS (8)
  1. VYTORIN [Suspect]
     Indication: HYPERLIPIDAEMIA
     Route: 048
     Dates: start: 20080101, end: 20100117
  2. ACETAMINOPHEN [Suspect]
     Indication: PAIN IN EXTREMITY
     Dosage: 1-2 PER DAY
     Route: 048
     Dates: start: 20091213, end: 20100117
  3. FALITHROM [Suspect]
     Indication: ATRIAL FIBRILLATION
     Route: 048
     Dates: start: 20080101, end: 20100117
  4. CONCOR [Concomitant]
     Indication: ATRIAL FIBRILLATION
     Dosage: 5 MG - 0 - 2.5 MG PER DAY
     Route: 048
     Dates: start: 20080101
  5. PANTOPRAZOLE SODIUM [Concomitant]
     Indication: PROPHYLAXIS AGAINST GASTROINTESTINAL ULCER
     Route: 048
     Dates: start: 20080101
  6. RAMIPRIL [Concomitant]
     Route: 048
     Dates: start: 20080101
  7. DIGITOXIN [Concomitant]
     Route: 048
     Dates: start: 20080101
  8. SPIRIVA [Concomitant]
     Indication: CHRONIC OBSTRUCTIVE PULMONARY DISEASE
     Route: 055
     Dates: start: 20080101

REACTIONS (1)
  - HYPERTRANSAMINASAEMIA [None]
